FAERS Safety Report 4371265-X (Version None)
Quarter: 2004Q2

REPORT INFORMATION
  Report Type: 
  Country: None (occurrence: None)
  Receive Date: 20040604
  Receipt Date: 20040528
  Transmission Date: 20050107
  Serious: Yes (Other)
  Sender: FDA-Public Use
  Company Number: US-MERCK-0406USA00018

PATIENT

DRUGS (3)
  1. LIPITOR [Concomitant]
     Route: 065
  2. ZETIA [Suspect]
     Indication: LOW DENSITY LIPOPROTEIN INCREASED
     Route: 048
  3. ZETIA [Suspect]
     Route: 048

REACTIONS (2)
  - BLOOD CREATINE PHOSPHOKINASE INCREASED [None]
  - RHABDOMYOLYSIS [None]
